FAERS Safety Report 12401833 (Version 3)
Quarter: 2018Q2

REPORT INFORMATION
  Report Type: Spontaneous
  Country: US (occurrence: US)
  Receive Date: 20160525
  Receipt Date: 20180517
  Transmission Date: 20180711
  Serious: No
  Sender: FDA-Public Use
  Company Number: US-SA-2015SA192124

PATIENT
  Age: 75 Year
  Sex: Female

DRUGS (5)
  1. SOLOSTAR [Suspect]
     Active Substance: DEVICE
     Indication: TYPE 2 DIABETES MELLITUS
  2. SOLOSTAR [Suspect]
     Active Substance: DEVICE
     Indication: TYPE 2 DIABETES MELLITUS
     Dates: start: 2014
  3. TRULICITY [Concomitant]
     Active Substance: DULAGLUTIDE
  4. LANTUS SOLOSTAR [Suspect]
     Active Substance: INSULIN GLARGINE
     Indication: TYPE 2 DIABETES MELLITUS
     Dosage: DOSE:80 UNIT(S)
     Route: 051
     Dates: start: 2014
  5. LANTUS SOLOSTAR [Suspect]
     Active Substance: INSULIN GLARGINE
     Indication: TYPE 2 DIABETES MELLITUS
     Dosage: DOSE:130 UNIT(S)
     Route: 051

REACTIONS (10)
  - Weight abnormal [Unknown]
  - Device issue [Unknown]
  - Product use issue [Unknown]
  - Hunger [Unknown]
  - Drug dose omission [Unknown]
  - Blood glucose decreased [Recovered/Resolved]
  - Injection site pain [Unknown]
  - Injection site haemorrhage [Unknown]
  - Glycosylated haemoglobin increased [Unknown]
  - Product use issue [Unknown]

NARRATIVE: CASE EVENT DATE: 2014
